FAERS Safety Report 7862728-0 (Version None)
Quarter: 2011Q4

REPORT INFORMATION
  Report Type: 
  Country: None (occurrence: None)
  Receive Date: 20111027
  Receipt Date: 20101112
  Transmission Date: 20120403
  Serious: No
  Sender: FDA-Public Use
  Company Number: US-AMGEN-USASP2010004737

PATIENT
  Sex: Female

DRUGS (6)
  1. LITHIUM CITRATE [Concomitant]
     Dosage: 150 MG, UNK
  2. LEXAPRO [Concomitant]
     Dosage: 10 MG, UNK
  3. NEXIUM [Concomitant]
     Dosage: 20 MG, UNK
  4. ENBREL [Suspect]
     Indication: PRODUCT USED FOR UNKNOWN INDICATION
     Dosage: 25 MG, 2 TIMES/WK
     Route: 058
  5. ATIVAN [Concomitant]
     Dosage: 0.5 MG, UNK
  6. NEUROTIN                           /00949202/ [Concomitant]
     Dosage: 100 MG, UNK

REACTIONS (1)
  - UPPER RESPIRATORY TRACT INFECTION [None]
